FAERS Safety Report 23643802 (Version 1)
Quarter: 2024Q1

REPORT INFORMATION
  Report Type: Report from Study
  Country: US (occurrence: US)
  Receive Date: 20240318
  Receipt Date: 20240318
  Transmission Date: 20240410
  Serious: Yes (Other)
  Sender: FDA-Public Use
  Company Number: US-ARGENX-2023-ARGX-US002238

PATIENT

DRUGS (4)
  1. VYVGART [Suspect]
     Active Substance: EFGARTIGIMOD ALFA-FCAB
     Indication: Myasthenia gravis
     Dosage: 10 MG/KG
     Route: 042
     Dates: start: 20230612
  2. VYVGART [Suspect]
     Active Substance: EFGARTIGIMOD ALFA-FCAB
     Dosage: 10 MG/KG
     Route: 042
     Dates: start: 20230710
  3. VYVGART [Suspect]
     Active Substance: EFGARTIGIMOD ALFA-FCAB
     Dosage: 10 MG/KG
     Route: 042
     Dates: start: 20231016
  4. VYVGART HYTRULO [Suspect]
     Active Substance: EFGARTIGIMOD ALFA\HYALURONIDASE-QVFC
     Indication: Myasthenia gravis
     Dosage: 1008 MG/11200 UNITS
     Route: 058
     Dates: start: 20240226

REACTIONS (17)
  - Hallucination, auditory [Unknown]
  - Brain fog [Unknown]
  - Diarrhoea [Unknown]
  - Fall [Unknown]
  - Face injury [Unknown]
  - Concussion [Unknown]
  - Fall [Unknown]
  - Blepharospasm [Unknown]
  - Back disorder [Recovering/Resolving]
  - Dysarthria [Unknown]
  - Brain fog [Unknown]
  - Brain fog [Unknown]
  - Fatigue [Unknown]
  - Bronchitis [Unknown]
  - Upper respiratory tract infection [Unknown]
  - Procedural headache [Unknown]
  - Procedural headache [Unknown]

NARRATIVE: CASE EVENT DATE: 20230720
